FAERS Safety Report 19043187 (Version 1)
Quarter: 2021Q1

REPORT INFORMATION
  Report Type: Spontaneous
  Country: US (occurrence: US)
  Receive Date: 20210323
  Receipt Date: 20210323
  Transmission Date: 20210420
  Serious: Yes (Death, Other)
  Sender: FDA-Public Use
  Company Number: US-TEVA-2021-US-1892456

PATIENT
  Sex: Male

DRUGS (13)
  1. BUPRENORPHINE. [Suspect]
     Active Substance: BUPRENORPHINE
     Route: 062
  2. MORPHINEEXTENDED?RELEASE TABLETS [Suspect]
     Active Substance: MORPHINE
     Route: 065
  3. HYDROMOPHONE [Suspect]
     Active Substance: HYDROMORPHONE
     Dosage: IMMEDIATE RELEASE TABLETS,
     Route: 065
  4. BUTRANS [Suspect]
     Active Substance: BUPRENORPHINE
     Route: 065
  5. MS CONTIN [Suspect]
     Active Substance: MORPHINE SULFATE
     Route: 065
  6. OXYCODONE EXTENDED?RELEASE TABLETS [Suspect]
     Active Substance: OXYCODONE
     Route: 065
  7. TRAMADOL. [Suspect]
     Active Substance: TRAMADOL
     Route: 065
  8. OXYCODONE AND ACETAMINOPHEN [Suspect]
     Active Substance: ACETAMINOPHEN\OXYCODONE HYDROCHLORIDE
     Route: 065
  9. HYDROCODONE AND ACETAMINOPHEN [Suspect]
     Active Substance: ACETAMINOPHEN\HYDROCODONE
     Route: 065
  10. OXYCODONE IMMEDIATE?RELEASE TABLETS [Suspect]
     Active Substance: OXYCODONE HYDROCHLORIDE
     Route: 065
  11. HYDROMOPHONE [Suspect]
     Active Substance: HYDROMORPHONE
     Dosage: HYDROMORPHONE ORAL SOLUTION.
     Route: 048
  12. OXYCONTIN [Suspect]
     Active Substance: OXYCODONE HYDROCHLORIDE
     Route: 065
  13. DILAUDID [Suspect]
     Active Substance: HYDROMORPHONE HYDROCHLORIDE
     Route: 065

REACTIONS (6)
  - Overdose [Unknown]
  - Economic problem [Unknown]
  - Loss of employment [Unknown]
  - Personal relationship issue [Unknown]
  - Death [Fatal]
  - Drug dependence [Unknown]
